FAERS Safety Report 4700672-8 (Version None)
Quarter: 2005Q2

REPORT INFORMATION
  Report Type: 
  Country: None (occurrence: None)
  Receive Date: 20050627
  Receipt Date: 20050309
  Transmission Date: 20051028
  Serious: Yes (Hospitalization, Other)
  Sender: FDA-Public Use
  Company Number: US-MERCK-0503USA01685

PATIENT
  Age: 49 Year
  Sex: Male
  Weight: 89 kg

DRUGS (39)
  1. AVANDIA [Concomitant]
     Route: 065
  2. LOPRESSOR [Concomitant]
     Route: 065
     Dates: start: 20030701
  3. ZOLOFT [Concomitant]
     Indication: ANXIETY
     Route: 065
     Dates: start: 20030503
  4. FAMVIR [Concomitant]
     Route: 065
  5. COZAAR [Concomitant]
     Route: 048
     Dates: start: 20030722
  6. DIATX [Concomitant]
     Route: 065
  7. DURICEF [Concomitant]
     Route: 065
  8. ACETAMINOPHEN AND HYDROCODONE BITARTRATE [Concomitant]
     Route: 065
  9. NEPHRO-VITE RX [Concomitant]
     Route: 065
  10. TEMAZEPAM [Concomitant]
     Route: 065
  11. AMOXICILLIN AND CLAVULANATE POTASSIUM [Concomitant]
     Route: 065
  12. MINOXIDIL 2% [Concomitant]
     Route: 065
  13. METRONIDAZOLE [Concomitant]
     Route: 065
  14. ENDOCET [Concomitant]
     Route: 065
  15. LABETALOL HYDROCHLORIDE [Concomitant]
     Route: 065
  16. AMITRIPTYLINE HYDROCHLORIDE [Concomitant]
     Route: 048
  17. ACETAMINOPHEN AND PROPOXYPHENE NAPSYLATE [Concomitant]
     Route: 065
  18. NIFEDIPINE [Concomitant]
     Route: 048
  19. ZITHROMAX [Concomitant]
     Route: 065
  20. CLINDAMYCIN [Concomitant]
     Route: 065
  21. TRIAMCINOLONE ACETONIDE [Concomitant]
     Route: 065
  22. VIOXX [Suspect]
     Indication: ARTHRITIS
     Route: 048
     Dates: start: 20030822, end: 20040901
  23. VIOXX [Suspect]
     Indication: ARTHRALGIA
     Route: 048
     Dates: start: 20030822, end: 20040901
  24. PHOSLO [Concomitant]
     Route: 065
  25. PREDNISONE [Concomitant]
     Route: 048
  26. ALLOPURINOL [Concomitant]
     Route: 048
  27. DOCUSATE SODIUM [Concomitant]
     Route: 065
  28. LIPITOR [Concomitant]
     Route: 065
     Dates: start: 20001018, end: 20031015
  29. NORVASC [Concomitant]
     Route: 065
     Dates: start: 20001110, end: 20040704
  30. LEVAQUIN [Concomitant]
     Route: 065
  31. TYLENOL [Concomitant]
     Route: 065
     Dates: start: 19700101
  32. BEXTRA [Concomitant]
     Route: 065
     Dates: start: 20031224, end: 20040101
  33. CALCITRIOL [Concomitant]
     Route: 065
  34. COLCHICINE [Concomitant]
     Route: 065
  35. CARBIDOPA AND LEVODOPA [Concomitant]
     Route: 048
  36. HEPARIN [Concomitant]
     Route: 065
     Dates: start: 19900101
  37. ASPIRIN [Concomitant]
     Route: 048
     Dates: start: 19590101
  38. PRAVACHOL [Concomitant]
     Route: 065
  39. DIPHENHYDRAMINE HYDROCHLORIDE [Concomitant]
     Route: 065

REACTIONS (25)
  - ACUTE PULMONARY OEDEMA [None]
  - ANXIETY [None]
  - ARTERIOVENOUS FISTULA THROMBOSIS [None]
  - CARDIAC FAILURE CONGESTIVE [None]
  - CHEST PAIN [None]
  - CLOSTRIDIUM COLITIS [None]
  - DIALYSIS [None]
  - DRUG HYPERSENSITIVITY [None]
  - FAECES DISCOLOURED [None]
  - FLUID OVERLOAD [None]
  - GASTROINTESTINAL HAEMORRHAGE [None]
  - GRAFT THROMBOSIS [None]
  - GYNAECOMASTIA [None]
  - HERNIA [None]
  - HYPERTENSIVE CRISIS [None]
  - HYPERTENSIVE EMERGENCY [None]
  - LATEX ALLERGY [None]
  - MEDICAL DEVICE COMPLICATION [None]
  - NON-CARDIAC CHEST PAIN [None]
  - PERITONEAL DISORDER [None]
  - PLEURITIC PAIN [None]
  - PNEUMONIA [None]
  - PULMONARY INFARCTION [None]
  - PULMONARY OEDEMA [None]
  - THROMBOSIS [None]
